FAERS Safety Report 6847962-0 (Version None)
Quarter: 2010Q3

REPORT INFORMATION
  Report Type: 
  Country: None (occurrence: None)
  Receive Date: 20100716
  Receipt Date: 20100715
  Transmission Date: 20110219
  Serious: Yes (Hospitalization)
  Sender: FDA-Public Use
  Company Number: A0727626A

PATIENT
  Age: 77 Year
  Sex: Female

DRUGS (3)
  1. ALLI [Suspect]
     Route: 048
     Dates: start: 20080501
  2. VITAMIN E [Concomitant]
  3. VITAMIN C [Concomitant]

REACTIONS (4)
  - DIARRHOEA [None]
  - NEPHRECTOMY [None]
  - RECTAL DISCHARGE [None]
  - RENAL CANCER [None]
